FAERS Safety Report 6844649-5 (Version None)
Quarter: 2010Q3

REPORT INFORMATION
  Report Type: 
  Country: None (occurrence: None)
  Receive Date: 20100715
  Receipt Date: 20100708
  Transmission Date: 20110219
  Serious: Yes (Death, Hospitalization)
  Sender: FDA-Public Use
  Company Number: FR-TEVA-237733ISR

PATIENT
  Sex: Female

DRUGS (3)
  1. COPAXONE [Suspect]
     Indication: MULTIPLE SCLEROSIS
     Dates: start: 20040501
  2. AMANTADINE HYDROCHLORIDE [Concomitant]
     Indication: FATIGUE
     Dates: start: 20040101
  3. PAROXETINE HCL [Concomitant]
     Indication: DEPRESSION
     Dates: start: 20020101

REACTIONS (5)
  - ACIDOSIS [None]
  - CARDIAC FAILURE [None]
  - MYOCARDITIS [None]
  - RENAL FAILURE [None]
  - THROMBOCYTOPENIC PURPURA [None]
